FAERS Safety Report 23141268 (Version 1)
Quarter: 2023Q4

REPORT INFORMATION
  Report Type: Other
  Country: US (occurrence: None)
  Receive Date: 20231103
  Receipt Date: 20231103
  Transmission Date: 20240110
  Serious: Yes (Hospitalization)
  Sender: FDA-Public Use
  Company Number: US-ROCHE-3445351

PATIENT
  Age: 66 Year
  Sex: Male
  Weight: 87.531 kg

DRUGS (13)
  1. OCREVUS [Suspect]
     Active Substance: OCRELIZUMAB
     Indication: Primary progressive multiple sclerosis
     Dosage: MOST RECENT INFUSION WAS ON 08/APR/2023. DATE OF NEXT INFUSION 07/OCT/2023.
     Route: 042
  2. OXCARBAZEPINE [Concomitant]
     Active Substance: OXCARBAZEPINE
  3. TAMSULOSIN HYDROCHLORIDE [Concomitant]
     Active Substance: TAMSULOSIN HYDROCHLORIDE
  4. MYRBETRIQ [Concomitant]
     Active Substance: MIRABEGRON
  5. LEVOTHYROXINE [Concomitant]
     Active Substance: LEVOTHYROXINE
  6. ATORVASTATIN [Concomitant]
     Active Substance: ATORVASTATIN
  7. CALCITRIOL [Concomitant]
     Active Substance: CALCITRIOL
  8. HYDROCHLOROTHIAZIDE [Concomitant]
     Active Substance: HYDROCHLOROTHIAZIDE
  9. VITAMIN D3 [Concomitant]
     Active Substance: CHOLECALCIFEROL
  10. MAGNESIUM [Concomitant]
     Active Substance: MAGNESIUM
  11. COLACE [Concomitant]
     Active Substance: DOCUSATE SODIUM
  12. MIRACLE MOUTHWASH [BENADRYL;LIDOCAINE;MAALOX] [Concomitant]
  13. LIDOCAINE [Concomitant]
     Active Substance: LIDOCAINE

REACTIONS (7)
  - Pneumonia [Unknown]
  - Fall [Unknown]
  - Urinary tract infection [Unknown]
  - Dysarthria [Unknown]
  - Gait disturbance [Unknown]
  - Rhinorrhoea [Not Recovered/Not Resolved]
  - Trigeminal neuralgia [Not Recovered/Not Resolved]

NARRATIVE: CASE EVENT DATE: 20230924
